FAERS Safety Report 22151439 (Version 1)
Quarter: 2023Q1

REPORT INFORMATION
  Report Type: Spontaneous
  Country: PL (occurrence: PL)
  Receive Date: 20230329
  Receipt Date: 20230329
  Transmission Date: 20230418
  Serious: Yes (Hospitalization, Other)
  Sender: FDA-Public Use
  Company Number: PL-MLMSERVICE-20230321-4123060-3

PATIENT
  Age: 4 Year
  Sex: Female
  Weight: 14 kg

DRUGS (1)
  1. ACETAMINOPHEN [Suspect]
     Active Substance: ACETAMINOPHEN
     Indication: Product used for unknown indication
     Dosage: PATIENT AN HER SISTER DRANK A 150 ML BOTTLE OF SYRUP
     Route: 048

REACTIONS (4)
  - Dehydration [Recovered/Resolved]
  - Vomiting [Recovered/Resolved]
  - Toxicity to various agents [Recovered/Resolved]
  - Self-medication [Recovered/Resolved]
